FAERS Safety Report 7240244-7 (Version None)
Quarter: 2011Q1

REPORT INFORMATION
  Report Type: 
  Country: None (occurrence: None)
  Receive Date: 20110124
  Receipt Date: 20110117
  Transmission Date: 20110831
  Serious: Yes (Death, Hospitalization)
  Sender: FDA-Public Use
  Company Number: US-ASTELLAS-2011US000184

PATIENT

DRUGS (6)
  1. UNSPECIFIED MEDICATION [Concomitant]
     Indication: NEUROPATHY PERIPHERAL
     Dosage: UNK
     Route: 065
     Dates: end: 20101228
  2. COUMADIN [Concomitant]
     Indication: THROMBOSIS
     Dosage: UNK
     Route: 065
     Dates: start: 20090101, end: 20101228
  3. PROGRAF [Suspect]
     Indication: LIVER TRANSPLANT
     Dosage: 2 MG, BID
     Route: 048
     Dates: start: 19980502, end: 20101228
  4. DIFLUCAN [Concomitant]
     Indication: FUNGAL INFECTION
     Dosage: 100 MG, UID/QD
     Route: 048
     Dates: start: 20090101, end: 20101228
  5. ANTIBIOTICS [Concomitant]
     Indication: PRODUCT USED FOR UNKNOWN INDICATION
     Dosage: UNK
     Route: 065
     Dates: end: 20101228
  6. PREDNISONE [Concomitant]
     Indication: MYCOBACTERIUM AVIUM COMPLEX INFECTION
     Dosage: 5 MG, UNKNOWN/D
     Route: 065
     Dates: start: 19980502, end: 20101228

REACTIONS (1)
  - RESPIRATORY FAILURE [None]
